FAERS Safety Report 9739220 (Version 2)
Quarter: 2013Q4

REPORT INFORMATION
  Report Type: Report from Study
  Country: DE (occurrence: DE)
  Receive Date: 20131209
  Receipt Date: 20131224
  Transmission Date: 20140711
  Serious: No
  Sender: FDA-Public Use
  Company Number: DE-SHIRE-ALL1-2013-08499

PATIENT
  Age: 28 Year
  Sex: Male

DRUGS (8)
  1. IDURSULFASE [Suspect]
     Indication: MUCOPOLYSACCHARIDOSIS II
     Dosage: 36 MG, 1X/WEEK
     Route: 041
     Dates: start: 20061009
  2. PANKREATIN [Concomitant]
     Indication: GASTROINTESTINAL DISORDER
     Dosage: 1 DF, 3X/DAY:TID
     Route: 048
     Dates: start: 2009
  3. DULOXETINE [Concomitant]
     Indication: PRODUCT USED FOR UNKNOWN INDICATION
     Dosage: 60 MG, 1X/DAY:QD
     Route: 048
     Dates: start: 2009
  4. LORAZEPAM [Concomitant]
     Indication: SLEEP DISORDER
     Dosage: 1 MG, 1X/DAY:QD
     Route: 048
     Dates: start: 2009
  5. SILDENAFIL [Concomitant]
     Indication: CARDIOVASCULAR DISORDER
     Dosage: 20 MG, 3X/DAY:TID
     Route: 048
     Dates: start: 2009
  6. TORASEMID [Concomitant]
     Indication: CARDIOVASCULAR DISORDER
     Dosage: 10 MG, 2X/DAY:BID
     Route: 048
     Dates: start: 2009
  7. FLUTICASONE W/SALMETEROL [Concomitant]
     Indication: RESPIRATORY DISORDER
     Dosage: 1 DF, 2X/DAY:BID
     Route: 055
     Dates: start: 2009
  8. SPIRONOLACTONE [Concomitant]
     Indication: CARDIOVASCULAR DISORDER
     Dosage: 100 MG, 1X/DAY:QD
     Route: 048
     Dates: start: 2009

REACTIONS (1)
  - Chondropathy [Not Recovered/Not Resolved]
